FAERS Safety Report 6979662-0 (Version None)
Quarter: 2010Q3

REPORT INFORMATION
  Report Type: 
  Country: None (occurrence: None)
  Receive Date: 20100910
  Receipt Date: 20100910
  Transmission Date: 20110219
  Serious: No
  Sender: FDA-Public Use
  Company Number: None

PATIENT

DRUGS (2)
  1. ABILIFY [Suspect]
     Indication: BIPOLAR I DISORDER
     Dosage: 30MG 1 X DAY PILL
     Dates: start: 20070101
  2. ABILIFY [Suspect]
     Indication: SCHIZOAFFECTIVE DISORDER
     Dosage: 20MG 1X DAY PILL
     Dates: start: 20070101, end: 20090101

REACTIONS (3)
  - FORMICATION [None]
  - MENTAL DISORDER [None]
  - UNEVALUABLE EVENT [None]
